FAERS Safety Report 19401557 (Version 2)
Quarter: 2021Q3

REPORT INFORMATION
  Report Type: Spontaneous
  Country: US (occurrence: US)
  Receive Date: 20210611
  Receipt Date: 20210702
  Transmission Date: 20211014
  Serious: Yes (Other)
  Sender: FDA-Public Use
  Company Number: US-AMGEN-USASP2021086677

PATIENT
  Age: 75 Year
  Sex: Female
  Weight: 72.3 kg

DRUGS (36)
  1. IBUPROFEN. [Concomitant]
     Active Substance: IBUPROFEN
     Dosage: 200 MILLIGRAM 1 TABLET EVERY SIX HOURS
     Route: 048
     Dates: start: 20200213
  2. MODERNA COVID?19 VACCINE [Concomitant]
     Active Substance: CX-024414
     Dosage: 100 MICROGRAM PER 0.5 ML DOSE
     Dates: start: 20210127
  3. INFLUENZA VACCINE [Concomitant]
     Active Substance: INFLUENZA VIRUS VACCINE
     Dosage: UNK
     Dates: start: 20201009
  4. INFLUENZA VACCINE [Concomitant]
     Active Substance: INFLUENZA VIRUS VACCINE
     Dosage: UNK
     Dates: start: 20170922
  5. POLIOMYELITIS VACCINE NOS [Concomitant]
     Active Substance: POLIOMYELITIS VACCINE
     Dosage: UNK
     Dates: start: 19590820
  6. ZOSTER [Concomitant]
     Dosage: UNK
     Dates: start: 20190814
  7. ACETAMINOPHEN. [Concomitant]
     Active Substance: ACETAMINOPHEN
     Dosage: 500 MILLIGRAM
     Dates: start: 20200213
  8. INFLUENZA VACCINE [Concomitant]
     Active Substance: INFLUENZA VIRUS VACCINE
     Dosage: 0.5 MILLILITER
     Route: 030
     Dates: start: 20141030
  9. POLIOMYELITIS VACCINE NOS [Concomitant]
     Active Substance: POLIOMYELITIS VACCINE
     Dosage: UNK
     Dates: start: 19591029
  10. PROLIA [Suspect]
     Active Substance: DENOSUMAB
     Indication: OSTEOPOROSIS POSTMENOPAUSAL
     Dosage: 60 MILLIGRAM PER MILLILITRE
     Route: 058
     Dates: start: 20201217
  11. MODERNA COVID?19 VACCINE [Concomitant]
     Active Substance: CX-024414
     Dosage: 100 MICROGRAM PER 0.5 ML DOSE
     Dates: start: 20201230
  12. DIPHTHERIA ? TETANUS ? PERTUSSIS VACCINE ADSORBED [Concomitant]
     Dosage: UNK
     Dates: start: 19460419
  13. INFLUENZA VACCINE [Concomitant]
     Active Substance: INFLUENZA VIRUS VACCINE
     Dosage: 0.5 MILLILITER
     Route: 030
     Dates: start: 20130913
  14. INFLUENZA VACCINE [Concomitant]
     Active Substance: INFLUENZA VIRUS VACCINE
     Dosage: 0.5 MILLILITER
     Route: 030
     Dates: start: 20121010
  15. POLIOMYELITIS VACCINE NOS [Concomitant]
     Active Substance: POLIOMYELITIS VACCINE
     Dosage: UNK
     Dates: start: 19560622
  16. DEPO?MEDROL [Concomitant]
     Active Substance: METHYLPREDNISOLONE ACETATE
     Indication: BURSITIS
     Dosage: 80 MILLIGRAM PER MILLILITRE
     Dates: start: 20210607
  17. CALCIUM [Concomitant]
     Active Substance: CALCIUM
     Dosage: TWICE DAILY
     Dates: start: 20210225
  18. INFLUENZA VACCINE [Concomitant]
     Active Substance: INFLUENZA VIRUS VACCINE
     Dosage: UNK
     Dates: start: 20191113
  19. INFLUENZA VACCINE [Concomitant]
     Active Substance: INFLUENZA VIRUS VACCINE
     Dosage: 0.5 MILLILITER
     Route: 030
     Dates: start: 20151214
  20. DIPHTHERIA ? TETANUS ? PERTUSSIS VACCINE ADSORBED [Concomitant]
     Dosage: UNK
     Dates: start: 19460819
  21. INFLUENZA VACCINE [Concomitant]
     Active Substance: INFLUENZA VIRUS VACCINE
     Dosage: UNK
     Dates: start: 20161001
  22. PNEUMOCOCCAL CONJUGATE VACCINE [Concomitant]
     Active Substance: PNEUMOCOCCAL VACCINE POLYVALENT
     Dosage: 0.5 MILLILITER
     Route: 030
     Dates: start: 20151214
  23. ZOSTER [Concomitant]
     Dosage: UNK
     Dates: start: 20130913
  24. VITAMINS NOS [Concomitant]
     Active Substance: VITAMINS
     Dosage: UNK
     Dates: start: 20210225
  25. DIPHTHERIA ? TETANUS ? PERTUSSIS VACCINE ADSORBED [Concomitant]
     Dosage: UNK
     Dates: start: 19460619
  26. PNEUMOCOCCAL CONJUGATE VACCINE [Concomitant]
     Active Substance: PNEUMOCOCCAL VACCINE POLYVALENT
     Dosage: 0.5 MILLILITER
     Route: 030
     Dates: start: 20111128
  27. POLIOMYELITIS VACCINE NOS [Concomitant]
     Active Substance: POLIOMYELITIS VACCINE
     Dosage: UNK
     Dates: start: 19551008
  28. DIPHTHERIA ? TETANUS ? PERTUSSIS VACCINE ADSORBED [Concomitant]
     Dosage: UNK
     Dates: start: 19500619
  29. INFLUENZA VACCINE [Concomitant]
     Active Substance: INFLUENZA VIRUS VACCINE
     Dosage: UNK
     Dates: start: 20161020
  30. INFLUENZA VACCINE [Concomitant]
     Active Substance: INFLUENZA VIRUS VACCINE
     Dosage: 0.5 MILLILITER
     Route: 030
     Dates: start: 20101014
  31. ZOSTER [Concomitant]
     Dosage: UNK
     Dates: start: 20190814
  32. PRAVASTATIN. [Concomitant]
     Active Substance: PRAVASTATIN
     Dosage: 40 MILLIGRAM 1 TABLET BY MOUTH QD
     Dates: start: 20210120
  33. DIPHTHERIA ? TETANUS ? PERTUSSIS VACCINE ADSORBED [Concomitant]
     Dosage: UNK
     Dates: start: 19500819
  34. INFLUENZA VACCINE [Concomitant]
     Active Substance: INFLUENZA VIRUS VACCINE
     Dosage: 0.5 MILLILITER
     Route: 030
     Dates: start: 20111128
  35. TETANUS TOXOID [Concomitant]
     Active Substance: TETANUS TOXOIDS
     Dosage: UNK
     Dates: start: 19580502
  36. SHINGRIX [Concomitant]
     Active Substance: RECOMBINANT VARICELLA ZOSTER VIRUS (VZV) GLYCOPROTEIN E

REACTIONS (2)
  - Arthralgia [Not Recovered/Not Resolved]
  - Facial bones fracture [Unknown]

NARRATIVE: CASE EVENT DATE: 202101
